FAERS Safety Report 9747076 (Version 1)
Quarter: 2013Q4

REPORT INFORMATION
  Report Type: Spontaneous
  Country: GB (occurrence: GB)
  Receive Date: 20131211
  Receipt Date: 20131211
  Transmission Date: 20140711
  Serious: Yes (Life-Threatening, Hospitalization, Disabling, Other)
  Sender: FDA-Public Use
  Company Number: PHHY2013GB142786

PATIENT
  Age: 27 Year
  Sex: Female

DRUGS (12)
  1. QUETIAPINE [Suspect]
     Indication: PSYCHIATRIC SYMPTOM
     Dosage: 250 MG, QD
     Route: 048
  2. WARFARIN [Concomitant]
  3. CYCLIZINE [Concomitant]
     Dosage: 50 MG, QD
  4. HYDROXYZINE [Concomitant]
     Dosage: 25 MG, QD
  5. OMEPRAZOLE [Concomitant]
     Dosage: 20 MG, QD
  6. LORATADINE [Concomitant]
     Dosage: 10 MG, QD
  7. SENNA [Concomitant]
  8. SPIRONOLACTONE [Concomitant]
     Dosage: 50 MG, QD
  9. MEBEVERINE [Concomitant]
  10. SANDO K [Concomitant]
  11. RAMIPRIL [Concomitant]
     Dosage: 2.5 MG, QD
  12. FUROSEMIDE [Concomitant]
     Dosage: 120 MG, TID

REACTIONS (3)
  - Cardiac failure [Not Recovered/Not Resolved]
  - Ejection fraction decreased [Not Recovered/Not Resolved]
  - Left ventricular dysfunction [Not Recovered/Not Resolved]
